FAERS Safety Report 12360603 (Version 2)
Quarter: 2016Q4

REPORT INFORMATION
  Report Type: Report from Study
  Country: US (occurrence: US)
  Receive Date: 20160512
  Receipt Date: 20161116
  Transmission Date: 20170207
  Serious: Yes (Other)
  Sender: FDA-Public Use
  Company Number: US-AMGEN-USASP2016047383

PATIENT
  Age: 78 Year
  Sex: Female

DRUGS (2)
  1. SAVELLA [Concomitant]
     Active Substance: MILNACIPRAN HYDROCHLORIDE
     Indication: FIBROMYALGIA
  2. PROLIA [Suspect]
     Active Substance: DENOSUMAB
     Indication: BONE DENSITY DECREASED
     Dosage: 60 MG, UNK
     Route: 065
     Dates: start: 2015

REACTIONS (9)
  - Jaw operation [Unknown]
  - Surgery [Unknown]
  - Off label use [Unknown]
  - Drug intolerance [Unknown]
  - Gingival operation [Unknown]
  - Oral surgery [Unknown]
  - Adverse event [Unknown]
  - Tooth disorder [Not Recovered/Not Resolved]
  - Dental implantation [Unknown]

NARRATIVE: CASE EVENT DATE: 201604
